FAERS Safety Report 11838754 (Version 5)
Quarter: 2016Q1

REPORT INFORMATION
  Report Type: Report from Study
  Country: US (occurrence: US)
  Receive Date: 20151215
  Receipt Date: 20160211
  Transmission Date: 20160525
  Serious: Yes (Hospitalization)
  Sender: FDA-Public Use
  Company Number: US-AMGEN-USASL2015133346

PATIENT
  Age: 17 Year
  Sex: Female

DRUGS (1)
  1. ENBREL [Suspect]
     Active Substance: ETANERCEPT
     Indication: ANKYLOSING SPONDYLITIS
     Dosage: 50 MG, QWK
     Route: 065

REACTIONS (5)
  - Pain [Unknown]
  - Abnormal behaviour [Unknown]
  - Device issue [Unknown]
  - Mental disorder [Unknown]
  - Hospitalisation [Unknown]
